FAERS Safety Report 6825402-5 (Version None)
Quarter: 2010Q3

REPORT INFORMATION
  Report Type: 
  Country: None (occurrence: None)
  Receive Date: 20100708
  Receipt Date: 20070104
  Transmission Date: 20110219
  Serious: No
  Sender: FDA-Public Use
  Company Number: US-PFIZER INC-2007002866

PATIENT
  Sex: Male
  Weight: 80.74 kg

DRUGS (9)
  1. CHANTIX [Suspect]
     Indication: SMOKING CESSATION THERAPY
     Dates: start: 20061223
  2. ALBUTEROL [Concomitant]
     Indication: ASTHMA
     Route: 055
  3. ALBUTEROL [Concomitant]
     Indication: BRONCHITIS
  4. COUGH AND COLD PREPARATIONS [Concomitant]
     Indication: NASOPHARYNGITIS
     Dates: end: 20070102
  5. COUGH AND COLD PREPARATIONS [Concomitant]
     Indication: BRONCHITIS
  6. VITAMIN C [Concomitant]
  7. COUGH AND COLD PREPARATIONS [Concomitant]
  8. COUGH AND COLD PREPARATIONS [Concomitant]
  9. PROTONIX [Concomitant]
     Indication: GASTROOESOPHAGEAL REFLUX DISEASE

REACTIONS (13)
  - ABDOMINAL DISTENSION [None]
  - ABDOMINAL PAIN UPPER [None]
  - DIZZINESS [None]
  - DYSGEUSIA [None]
  - FEELING HOT [None]
  - FLUSHING [None]
  - HEADACHE [None]
  - HYPERHIDROSIS [None]
  - HYPERPHAGIA [None]
  - ORAL DISCOMFORT [None]
  - PAROSMIA [None]
  - THIRST [None]
  - WEIGHT INCREASED [None]
